FAERS Safety Report 24232470 (Version 3)
Quarter: 2025Q1

REPORT INFORMATION
  Report Type: Report from Study
  Country: US (occurrence: US)
  Receive Date: 20240821
  Receipt Date: 20250123
  Transmission Date: 20250408
  Serious: No
  Sender: TAKEDA
  Company Number: US-TAKEDA-2024TUS048312

PATIENT
  Sex: Female

DRUGS (7)
  1. PONATINIB [Suspect]
     Active Substance: PONATINIB
     Indication: Acute myeloid leukaemia
     Dosage: 30 MILLIGRAM, QD
  2. PONATINIB [Suspect]
     Active Substance: PONATINIB
     Dosage: 30 MILLIGRAM, QD
  3. PONATINIB [Suspect]
     Active Substance: PONATINIB
     Dosage: 15 MILLIGRAM, QD
  4. ZOVIRAX [Concomitant]
     Active Substance: ACYCLOVIR
  5. DIFLUCAN [Concomitant]
     Active Substance: FLUCONAZOLE
  6. LEVAQUIN [Concomitant]
     Active Substance: LEVOFLOXACIN
  7. BACTRIM [Concomitant]
     Active Substance: SULFAMETHOXAZOLE\TRIMETHOPRIM

REACTIONS (5)
  - Respiratory syncytial virus infection [Unknown]
  - Flatulence [Unknown]
  - Off label use [Unknown]
  - Product dose omission issue [Unknown]
  - Constipation [Unknown]
